FAERS Safety Report 8862945 (Version 3)
Quarter: 2014Q2

REPORT INFORMATION
  Report Type: Spontaneous
  Country: US (occurrence: US)
  Receive Date: 20121026
  Receipt Date: 20131119
  Transmission Date: 20141212
  Serious: Yes (Death)
  Sender: FDA-Public Use
  Company Number: PHEH2012US020966

PATIENT
  Sex: Male

DRUGS (16)
  1. TOBI [Suspect]
     Indication: BRONCHIECTASIS
     Dosage: 1 DF, BID (EVERY 12 HOURS)
     Dates: start: 20120613, end: 20120807
  2. TOBI [Suspect]
     Indication: CYSTIC FIBROSIS
  3. DEMADEX [Concomitant]
     Dosage: UNK
  4. JANUVIA [Concomitant]
     Dosage: UNK
  5. LANTUS [Concomitant]
     Dosage: UNK
  6. PRANDIN//DEFLAZACORT [Concomitant]
     Dosage: UNK
  7. VENTOLIN [Concomitant]
     Dosage: UNK
  8. ATROVENT [Concomitant]
     Dosage: UNK
  9. VIT D [Concomitant]
     Dosage: UNK
  10. LIPITOR [Concomitant]
     Dosage: UNK
  11. METOLAZONE [Concomitant]
     Dosage: UNK
  12. SYMBICORT [Concomitant]
     Dosage: UNK
  13. PREDNISONE [Concomitant]
     Dosage: UNK
  14. PROSCAR [Concomitant]
     Dosage: UNK
  15. FLOMAX//TAMSULOSIN HYDROCHLORIDE [Concomitant]
     Dosage: UNK
  16. CALCIUM [Concomitant]

REACTIONS (2)
  - Chronic obstructive pulmonary disease [Fatal]
  - Pulmonary fibrosis [Fatal]
